FAERS Safety Report 7389850-X (Version None)
Quarter: 2011Q1

REPORT INFORMATION
  Report Type: 
  Country: None (occurrence: None)
  Receive Date: 20110323
  Receipt Date: 20110318
  Transmission Date: 20110831
  Serious: Yes (Hospitalization, Disabling, Other)
  Sender: FDA-Public Use
  Company Number: 2009SP017681

PATIENT
  Age: 41 Year
  Sex: Female
  Weight: 47.6277 kg

DRUGS (9)
  1. NUVARING [Suspect]
     Indication: MENSTRUAL CYCLE MANAGEMENT
     Dosage: 1 DF;QM;VAG
     Route: 067
     Dates: start: 20030901
  2. NUVARING [Suspect]
     Indication: MENSTRUAL CYCLE MANAGEMENT
     Dosage: 1 DF;QM;VAG
     Route: 067
     Dates: start: 20040901
  3. NUVARING [Suspect]
     Indication: MENSTRUAL CYCLE MANAGEMENT
     Dosage: 1 DF;QM;VAG
     Route: 067
     Dates: start: 20050101
  4. AMITRIPTYLINE [Concomitant]
  5. TOPAMAX [Concomitant]
  6. PARAFON FORTE [Concomitant]
  7. NASACORT [Concomitant]
  8. ACETAMINOPHEN [Concomitant]
  9. MAXALT [Concomitant]

REACTIONS (37)
  - CEREBROVASCULAR ACCIDENT [None]
  - CONVULSION [None]
  - HYPOMENORRHOEA [None]
  - SKIN DISORDER [None]
  - SHIFT TO THE LEFT [None]
  - OSTEOPENIA [None]
  - HUMERUS FRACTURE [None]
  - GAIT DISTURBANCE [None]
  - DEPRESSION [None]
  - VAGINAL DISCHARGE [None]
  - BLOOD POTASSIUM DECREASED [None]
  - MIGRAINE [None]
  - PROTEIN C DECREASED [None]
  - OSTEOPOROSIS [None]
  - ANXIETY [None]
  - CEREBRAL HAEMORRHAGE [None]
  - DRUG SCREEN POSITIVE [None]
  - PROTEIN S DECREASED [None]
  - PAIN IN EXTREMITY [None]
  - CEREBRAL INFARCTION [None]
  - SINUSITIS [None]
  - PROTEIN C INCREASED [None]
  - INTRACRANIAL PRESSURE INCREASED [None]
  - COMPLEX REGIONAL PAIN SYNDROME [None]
  - CEREBRAL ISCHAEMIA [None]
  - CEREBRAL ARTERY OCCLUSION [None]
  - BRAIN MIDLINE SHIFT [None]
  - DYSPHAGIA [None]
  - DERMAL CYST [None]
  - CONDITION AGGRAVATED [None]
  - BLOOD HOMOCYSTEINE DECREASED [None]
  - OXYGEN SATURATION DECREASED [None]
  - URINARY TRACT INFECTION [None]
  - NERVE COMPRESSION [None]
  - WHITE BLOOD CELL COUNT INCREASED [None]
  - DRUG INTOLERANCE [None]
  - CHEST PAIN [None]
